FAERS Safety Report 7152317-8 (Version None)
Quarter: 2010Q4

REPORT INFORMATION
  Report Type: 
  Country: None (occurrence: None)
  Receive Date: 20101123
  Receipt Date: 20101112
  Transmission Date: 20110411
  Serious: Yes (Life-Threatening, Hospitalization)
  Sender: FDA-Public Use
  Company Number: 2010EN000337

PATIENT
  Age: 12 Month
  Sex: Male

DRUGS (8)
  1. ABELCET [Suspect]
     Indication: ACUTE LYMPHOCYTIC LEUKAEMIA
     Dosage: 50 MG;X1;IV
     Route: 042
     Dates: start: 20100323, end: 20100324
  2. VINCRISTINE SULFATE [Suspect]
     Indication: ACUTE LYMPHOCYTIC LEUKAEMIA
     Dosage: 7 MG; IV
     Route: 042
     Dates: start: 20100316, end: 20100324
  3. DAUNORUBICIN HCL [Suspect]
     Indication: ACUTE LYMPHOCYTIC LEUKAEMIA
     Dosage: 14 MG; IV
     Route: 042
     Dates: start: 20100316, end: 20100324
  4. VANCOMYCIN [Suspect]
     Indication: ACUTE LYMPHOCYTIC LEUKAEMIA
     Dosage: 100 MG; IV
     Route: 042
     Dates: start: 20100323, end: 20100324
  5. METHOTREXATE [Suspect]
     Indication: ACUTE LYMPHOCYTIC LEUKAEMIA
     Dosage: 8 MG;IV
     Route: 042
     Dates: start: 20100323, end: 20100324
  6. METHYLPREDNISOLONE [Suspect]
     Indication: ACUTE LYMPHOCYTIC LEUKAEMIA
     Dosage: 6 MG
     Dates: start: 20100323, end: 20100324
  7. KINDROLASE (ASPARAGINASE) [Suspect]
     Indication: ACUTE LYMPHOCYTIC LEUKAEMIA
  8. ZOFRAN [Concomitant]

REACTIONS (1)
  - PNEUMONIA [None]
